FAERS Safety Report 21323552 (Version 1)
Quarter: 2022Q3

REPORT INFORMATION
  Report Type: Spontaneous
  Country: FR (occurrence: FR)
  Receive Date: 20220912
  Receipt Date: 20220912
  Transmission Date: 20221027
  Serious: Yes (Hospitalization)
  Sender: FDA-Public Use
  Company Number: FR-SUN PHARMACEUTICAL INDUSTRIES LTD-2022RR-354362

PATIENT
  Age: 86 Year
  Sex: Male

DRUGS (5)
  1. TAMSULOSIN [Suspect]
     Active Substance: TAMSULOSIN
     Indication: Urinary incontinence
     Dosage: 0.4 MG/DAY
     Route: 048
     Dates: start: 20220805
  2. ESIDREX [Suspect]
     Active Substance: HYDROCHLOROTHIAZIDE
     Indication: Generalised oedema
     Dosage: UNK
     Route: 065
     Dates: start: 20220806
  3. VENOFER [Suspect]
     Active Substance: IRON SUCROSE
     Indication: Iron deficiency anaemia
     Dosage: 200 MG
     Route: 040
     Dates: start: 20220806, end: 20220806
  4. CANRENOATE POTASSIUM\TROMETHAMINE [Suspect]
     Active Substance: CANRENOATE POTASSIUM\TROMETHAMINE
     Indication: Hypokalaemia
     Dosage: 200 MG/DAY
     Route: 040
     Dates: start: 20220806, end: 20220807
  5. CANRENOATE POTASSIUM\TROMETHAMINE [Suspect]
     Active Substance: CANRENOATE POTASSIUM\TROMETHAMINE
     Indication: Generalised oedema

REACTIONS (3)
  - Pruritus [Recovering/Resolving]
  - Rash maculo-papular [Recovering/Resolving]
  - Xerosis [Recovering/Resolving]

NARRATIVE: CASE EVENT DATE: 20220807
